FAERS Safety Report 17596686 (Version 2)
Quarter: 2020Q4

REPORT INFORMATION
  Report Type: Report from Study
  Country: IE (occurrence: IE)
  Receive Date: 20200330
  Receipt Date: 20201104
  Transmission Date: 20210113
  Serious: Yes (Hospitalization, Other)
  Sender: FDA-Public Use
  Company Number: IE-TEVA-2020-IE-1215739

PATIENT
  Age: 58 Year
  Sex: Female
  Weight: 45 kg

DRUGS (14)
  1. CYCLOPHOSPHAMIDE. [Suspect]
     Active Substance: CYCLOPHOSPHAMIDE
     Indication: DIFFUSE LARGE B-CELL LYMPHOMA
     Dosage: FIRST LINE)
     Route: 042
     Dates: start: 20190729
  2. METHOTREXATE. [Suspect]
     Active Substance: METHOTREXATE
     Indication: DIFFUSE LARGE B-CELL LYMPHOMA
     Dosage: (FIRST LINE)
     Route: 042
     Dates: start: 20190729
  3. MABTHERA [Suspect]
     Active Substance: RITUXIMAB
     Indication: DIFFUSE LARGE B-CELL LYMPHOMA
     Dosage: 525 MG,  (FIRST LINE)
     Route: 042
     Dates: start: 20190729
  4. CYTARABINE. [Suspect]
     Active Substance: CYTARABINE
     Indication: DIFFUSE LARGE B-CELL LYMPHOMA
     Dosage: (FIRST LINE)
     Route: 042
     Dates: start: 20190729
  5. VINCRISTINE [Suspect]
     Active Substance: VINCRISTINE
     Indication: DIFFUSE LARGE B-CELL LYMPHOMA
     Dosage: (FIRST LINE)
     Route: 042
     Dates: start: 20190729
  6. CISPLATIN. [Suspect]
     Active Substance: CISPLATIN
     Indication: DIFFUSE LARGE B-CELL LYMPHOMA
     Dosage: (SECOND LINE)
     Route: 042
     Dates: start: 20200123
  7. BENDAMUSTINE HYDROCHLORIDE. [Suspect]
     Active Substance: BENDAMUSTINE HYDROCHLORIDE
     Indication: DIFFUSE LARGE B-CELL LYMPHOMA
     Dosage: (1 CYCLE, THIRD LINE)
     Route: 042
     Dates: start: 20200217
  8. MABTHERA [Suspect]
     Active Substance: RITUXIMAB
     Dosage: . (THIRD LINE)
     Route: 042
     Dates: start: 20200217
  9. POLATUZUMAB VEDOTIN. [Suspect]
     Active Substance: POLATUZUMAB VEDOTIN
     Indication: DIFFUSE LARGE B-CELL LYMPHOMA
     Route: 065
  10. DOXORUBICIN [Suspect]
     Active Substance: DOXORUBICIN
     Indication: DIFFUSE LARGE B-CELL LYMPHOMA
     Dosage: (FIRST LINE)
     Route: 042
     Dates: start: 20190729
  11. G-CSF [Suspect]
     Active Substance: GRANULOCYTE COLONY-STIMULATING FACTOR NOS
     Indication: DIFFUSE LARGE B-CELL LYMPHOMA
     Route: 065
  12. DEXAMETHASONE. [Suspect]
     Active Substance: DEXAMETHASONE
     Indication: DIFFUSE LARGE B-CELL LYMPHOMA
     Route: 065
     Dates: start: 20200123
  13. GEMCITABINE. [Suspect]
     Active Substance: GEMCITABINE
     Indication: DIFFUSE LARGE B-CELL LYMPHOMA
     Dosage: (SECOND LINE)
     Route: 042
     Dates: start: 20200123
  14. MABTHERA [Suspect]
     Active Substance: RITUXIMAB
     Dosage: 525 MG, (SECOND LINE)
     Route: 042
     Dates: start: 20200123

REACTIONS (9)
  - Bone pain [Recovered/Resolved]
  - Thrombocytopenia [Unknown]
  - Cystitis haemorrhagic [Unknown]
  - Febrile neutropenia [Unknown]
  - Diffuse large B-cell lymphoma recurrent [Unknown]
  - Product use in unapproved indication [Unknown]
  - Bone marrow disorder [Unknown]
  - Leukaemic lymphoma [Unknown]
  - Skin mass [Unknown]

NARRATIVE: CASE EVENT DATE: 20200217
